FAERS Safety Report 25246154 (Version 1)
Quarter: 2025Q2

REPORT INFORMATION
  Report Type: Spontaneous
  Country: GB (occurrence: GB)
  Receive Date: 20250428
  Receipt Date: 20250428
  Transmission Date: 20250717
  Serious: Yes (Other)
  Sender: MYLAN
  Company Number: GB-MHRA-TPP18714407C12962915YC1745339514874

PATIENT
  Age: 37 Year
  Sex: Female
  Weight: 81 kg

DRUGS (2)
  1. DOXYCYCLINE [Suspect]
     Active Substance: DOXYCYCLINE
     Indication: Ill-defined disorder
  2. SUMATRIPTAN [Concomitant]
     Active Substance: SUMATRIPTAN
     Indication: Ill-defined disorder

REACTIONS (6)
  - Photosensitivity reaction [Unknown]
  - Oesophageal irritation [Recovered/Resolved]
  - Sunburn [Unknown]
  - Blister [Unknown]
  - Oral herpes [Unknown]
  - Rash [Unknown]
